FAERS Safety Report 20726114 (Version 1)
Quarter: 2022Q2

REPORT INFORMATION
  Report Type: Spontaneous
  Country: CN (occurrence: CN)
  Receive Date: 20220419
  Receipt Date: 20220419
  Transmission Date: 20220720
  Serious: Yes (Hospitalization)
  Sender: FDA-Public Use
  Company Number: CN-GLAXOSMITHKLINE-CN2022APC063503

PATIENT
  Age: 25 Year
  Sex: Female
  Weight: 50 kg

DRUGS (2)
  1. LAMOTRIGINE [Suspect]
     Active Substance: LAMOTRIGINE
     Indication: Bipolar disorder
     Dosage: 25 MG, BID
     Route: 048
     Dates: start: 20220208
  2. LAMOTRIGINE [Suspect]
     Active Substance: LAMOTRIGINE
     Dosage: 75 MG, BID
     Route: 048
     Dates: start: 20220218, end: 20220221

REACTIONS (13)
  - Drug hypersensitivity [Recovering/Resolving]
  - Rash pruritic [Recovering/Resolving]
  - Swelling face [Recovering/Resolving]
  - Pharyngeal swelling [Recovering/Resolving]
  - Oropharyngeal pain [Recovering/Resolving]
  - Rash [Recovering/Resolving]
  - Pruritus [Recovering/Resolving]
  - Pruritus genital [Recovering/Resolving]
  - Lymphadenopathy [Recovering/Resolving]
  - Lymph node pain [Recovering/Resolving]
  - Lip swelling [Recovering/Resolving]
  - Illness [Recovered/Resolved]
  - Off label use [Unknown]

NARRATIVE: CASE EVENT DATE: 20220201
